FAERS Safety Report 9378312 (Version 1)
Quarter: 2013Q3

REPORT INFORMATION
  Report Type: Spontaneous
  Country: GB (occurrence: GB)
  Receive Date: 20130701
  Receipt Date: 20130701
  Transmission Date: 20140515
  Serious: Yes (Other)
  Sender: FDA-Public Use
  Company Number: GB-TEVA-393969ISR

PATIENT
  Age: 45 Year
  Sex: Male

DRUGS (6)
  1. G-CSF (TEVAGRASTIM/RATIOGRASTIM) [Suspect]
     Indication: WHITE BLOOD CELL COUNT DECREASED
     Dosage: 34 MILLION UNITS
  2. CLOZARIL [Suspect]
     Indication: SCHIZOPHRENIA
     Dosage: UNK
     Dates: start: 20090122
  3. CLOZARIL [Suspect]
     Dosage: UNK
     Dates: start: 20090126
  4. CLOZARIL [Suspect]
     Dosage: 150 MILLIGRAM DAILY; 75 MG, BID
     Route: 048
     Dates: start: 20130123
  5. TELAPREVIR [Concomitant]
     Indication: HEPATITIS C
     Dosage: 2250 MILLIGRAM DAILY;
     Dates: start: 20130122, end: 2013
  6. RIBAVIRIN [Concomitant]
     Indication: HEPATITIS C
     Dosage: NOCTE
     Dates: start: 20130122, end: 2013

REACTIONS (5)
  - Chronic hepatitis C [Not Recovered/Not Resolved]
  - Neutrophil count increased [Unknown]
  - Platelet count decreased [Not Recovered/Not Resolved]
  - White blood cell count increased [Unknown]
  - White blood cell count decreased [Recovered/Resolved]
